FAERS Safety Report 15710476 (Version 1)
Quarter: 2018Q4

REPORT INFORMATION
  Report Type: Spontaneous
  Country: JP (occurrence: JP)
  Receive Date: 20181211
  Receipt Date: 20181211
  Transmission Date: 20190205
  Serious: Yes (Hospitalization)
  Sender: FDA-Public Use
  Company Number: JP-ELI_LILLY_AND_COMPANY-JP201811010238

PATIENT
  Age: 88 Year
  Sex: Female
  Weight: 40 kg

DRUGS (2)
  1. HUMALOG [Suspect]
     Active Substance: INSULIN LISPRO
     Indication: TYPE 1 DIABETES MELLITUS
     Dosage: 6 IU, DAILY
     Route: 058
     Dates: start: 20140213, end: 20170609
  2. INSULIN GLARGINE [Suspect]
     Active Substance: INSULIN GLARGINE
     Indication: TYPE 1 DIABETES MELLITUS
     Dosage: 6 IU, DAILY
     Route: 058
     Dates: end: 20170426

REACTIONS (4)
  - Cardiac failure acute [Recovered/Resolved]
  - Hypoglycaemia [Recovered/Resolved]
  - Lactic acidosis [Recovering/Resolving]
  - Anti-insulin antibody positive [Not Recovered/Not Resolved]

NARRATIVE: CASE EVENT DATE: 20170407
